FAERS Safety Report 15994052 (Version 1)
Quarter: 2019Q1

REPORT INFORMATION
  Report Type: Spontaneous
  Country: US (occurrence: US)
  Receive Date: 20190222
  Receipt Date: 20190222
  Transmission Date: 20190418
  Serious: No
  Sender: FDA-Public Use
  Company Number: US-GLAXOSMITHKLINE-US2019027582

PATIENT
  Sex: Female

DRUGS (3)
  1. LACTAID [Concomitant]
     Active Substance: LACTASE
     Indication: IRRITABLE BOWEL SYNDROME
     Dosage: UNK
  2. TRELEGY ELLIPTA [Suspect]
     Active Substance: FLUTICASONE FUROATE\UMECLIDINIUM BROMIDE\VILANTEROL TRIFENATATE
     Indication: ASTHMA
     Dosage: 1 PUFF(S), 1D
     Route: 055
     Dates: start: 201810
  3. TRELEGY ELLIPTA [Suspect]
     Active Substance: FLUTICASONE FUROATE\UMECLIDINIUM BROMIDE\VILANTEROL TRIFENATATE
     Indication: BRONCHIECTASIS

REACTIONS (6)
  - Product dose omission [Unknown]
  - Oropharyngeal pain [Unknown]
  - Headache [Recovered/Resolved]
  - Dysphonia [Unknown]
  - Insurance issue [Unknown]
  - Product use in unapproved indication [Unknown]
